FAERS Safety Report 11866148 (Version 1)
Quarter: 2015Q4

REPORT INFORMATION
  Report Type: Report from Study
  Country: US (occurrence: US)
  Receive Date: 20151223
  Receipt Date: 20151223
  Transmission Date: 20160305
  Serious: No
  Sender: FDA-Public Use
  Company Number: US-EXELIXIS-CABO-15005686

PATIENT
  Sex: Female

DRUGS (8)
  1. VITAMIN C [Concomitant]
     Active Substance: ASCORBIC ACID
  2. LEVOTHYROXINE. [Concomitant]
     Active Substance: LEVOTHYROXINE
  3. ATENOLOL. [Concomitant]
     Active Substance: ATENOLOL
  4. LOSARTAN. [Concomitant]
     Active Substance: LOSARTAN
  5. MELOXICAM. [Concomitant]
     Active Substance: MELOXICAM
  6. HYDROCHLOROTHIAZIDE. [Concomitant]
     Active Substance: HYDROCHLOROTHIAZIDE
  7. COMETRIQ [Suspect]
     Active Substance: CABOZANTINIB S-MALATE
     Indication: THYROID CANCER
     Dosage: 140 MG, QD
     Route: 048
     Dates: start: 20150913
  8. IRON [Concomitant]
     Active Substance: IRON

REACTIONS (16)
  - Skin exfoliation [Unknown]
  - Pain in extremity [Unknown]
  - Seasonal allergy [Unknown]
  - Dizziness [Unknown]
  - Dermatitis acneiform [Unknown]
  - Dry skin [Unknown]
  - Cough [Unknown]
  - Sneezing [Unknown]
  - Nausea [Unknown]
  - Renal pain [Unknown]
  - Emotional distress [Unknown]
  - Neoplasm skin [Unknown]
  - Insomnia [Unknown]
  - Pruritus [Unknown]
  - Hair colour changes [Unknown]
  - Dyspnoea [Unknown]

NARRATIVE: CASE EVENT DATE: 2015
